FAERS Safety Report 18727138 (Version 1)
Quarter: 2021Q1

REPORT INFORMATION
  Report Type: Spontaneous
  Country: US (occurrence: US)
  Receive Date: 20210111
  Receipt Date: 20210111
  Transmission Date: 20210419
  Serious: No
  Sender: FDA-Public Use
  Company Number: US-ROCHE-2667992

PATIENT
  Sex: Female
  Weight: 16.3 kg

DRUGS (1)
  1. HEMLIBRA [Suspect]
     Active Substance: EMICIZUMAB-KXWH
     Indication: FACTOR VIII DEFICIENCY
     Dosage: 45MG EVERY 14 DAYS
     Route: 058
     Dates: start: 20190201

REACTIONS (3)
  - Haematocrit decreased [Unknown]
  - Pyrexia [Not Recovered/Not Resolved]
  - Haemoglobin decreased [Unknown]
